FAERS Safety Report 22967604 (Version 10)
Quarter: 2024Q2

REPORT INFORMATION
  Report Type: Spontaneous
  Country: US (occurrence: US)
  Receive Date: 20230921
  Receipt Date: 20240527
  Transmission Date: 20240716
  Serious: Yes (Other)
  Sender: FDA-Public Use
  Company Number: US-PFIZER INC-PV202300153402

PATIENT
  Age: 73 Year
  Sex: Female
  Weight: 56.689 kg

DRUGS (3)
  1. LORBRENA [Suspect]
     Active Substance: LORLATINIB
     Indication: Non-small cell lung cancer
     Dosage: 100 MG FOR ABOUT A WEEK
     Dates: start: 20230817, end: 202309
  2. LORBRENA [Suspect]
     Active Substance: LORLATINIB
     Dosage: 75 MG (3 TABLETS OF 25 MG), DAILY
     Route: 048
     Dates: start: 20230918, end: 20231007
  3. LORBRENA [Suspect]
     Active Substance: LORLATINIB
     Dosage: TAKE 1 TABLET (25 MG) BY MOUTH DAILY. DO NOT TAKE FIRST DOSE UNTIL DIRECTED BY CLINICAL TEAM.
     Route: 048

REACTIONS (7)
  - Hallucination [Recovered/Resolved]
  - Off label use [Unknown]
  - Balance disorder [Recovered/Resolved]
  - Cognitive disorder [Recovered/Resolved]
  - Drug intolerance [Unknown]
  - Staring [Unknown]
  - Disorientation [Unknown]
